FAERS Safety Report 23056503 (Version 1)
Quarter: 2023Q4

REPORT INFORMATION
  Report Type: Spontaneous
  Country: DE (occurrence: DE)
  Receive Date: 20231011
  Receipt Date: 20231011
  Transmission Date: 20240110
  Serious: Yes (Life-Threatening, Other)
  Sender: FDA-Public Use
  Company Number: None

PATIENT

DRUGS (5)
  1. BEMPEDOIC ACID [Suspect]
     Active Substance: BEMPEDOIC ACID
     Indication: Hyperlipidaemia
     Dosage: 1 DF, QD (1X1)
     Route: 048
     Dates: start: 20211214, end: 20230823
  2. FENOFIBRATE [Suspect]
     Active Substance: FENOFIBRATE
     Indication: Hyperlipidaemia
     Dosage: 1 DF, QD (1X1 ) FIRST TIME GIFT
     Route: 048
     Dates: start: 202112, end: 202304
  3. SIMVASTATIN [Suspect]
     Active Substance: SIMVASTATIN
     Indication: Hyperlipidaemia
     Dosage: 1 DF, QD (1X1) THIRD-PARTY PRACTICE; FIRST-TIME ADMINISTRATION
     Route: 048
  4. ATORVASTATIN [Suspect]
     Active Substance: ATORVASTATIN
     Indication: Hyperlipidaemia
     Dosage: 1 DF, QD (FIRST TIME GIFT) (1X1)
     Route: 048
     Dates: start: 201801, end: 201902
  5. ROSUVASTATIN [Suspect]
     Active Substance: ROSUVASTATIN
     Indication: Hyperlipidaemia
     Dosage: 1 DF, QD (1X1) FIRST TIME GIFT
     Route: 048
     Dates: start: 201902, end: 201904

REACTIONS (2)
  - Glomerular filtration rate decreased [Recovered/Resolved]
  - Blood creatine phosphokinase increased [Recovered/Resolved]
